FAERS Safety Report 6299191-X (Version None)
Quarter: 2009Q3

REPORT INFORMATION
  Report Type: 
  Country: None (occurrence: None)
  Receive Date: 20090804
  Receipt Date: 20090720
  Transmission Date: 20100115
  Serious: Yes (Hospitalization)
  Sender: FDA-Public Use
  Company Number: 2009EU002554

PATIENT
  Sex: Female
  Weight: 85 kg

DRUGS (7)
  1. SOLIFENACIN [Suspect]
     Indication: HYPERTONIC BLADDER
     Dosage: 5 MG, UID/QD, ORAL
     Route: 048
     Dates: start: 20090202
  2. ASPIRIN [Concomitant]
  3. NIFEDIPINE [Concomitant]
  4. LASIX [Concomitant]
  5. METOPROLOL TARTRATE [Concomitant]
  6. METFORMIN HCL [Concomitant]
  7. PRESTATIN (PRAVASTATIN SODIUM) [Concomitant]

REACTIONS (1)
  - CYSTOPEXY [None]
